FAERS Safety Report 10182007 (Version 1)
Quarter: 2014Q2

REPORT INFORMATION
  Report Type: Spontaneous
  Country: US (occurrence: US)
  Receive Date: 20140519
  Receipt Date: 20140519
  Transmission Date: 20141212
  Serious: Yes (Death)
  Sender: FDA-Public Use
  Company Number: US-ABBVIE-14P-163-1237778-00

PATIENT
  Age: 69 Year
  Sex: Female

DRUGS (1)
  1. HUMIRA [Suspect]
     Indication: PSORIASIS
     Dates: start: 2008

REACTIONS (4)
  - Volvulus [Fatal]
  - Intestinal obstruction [Fatal]
  - Multi-organ failure [Fatal]
  - Constipation [Not Recovered/Not Resolved]
